FAERS Safety Report 4880782-5 (Version None)
Quarter: 2006Q1

REPORT INFORMATION
  Report Type: 
  Country: None (occurrence: None)
  Receive Date: 20060111
  Receipt Date: 20050329
  Transmission Date: 20060701
  Serious: No
  Sender: FDA-Public Use
  Company Number: 2005S1000121

PATIENT
  Age: 59 Year

DRUGS (42)
  1. CUBICIN [Suspect]
     Indication: PYREXIA
     Dosage: 300 MG;Q24H;IV
     Route: 042
     Dates: start: 20050201, end: 20050204
  2. ACETAMINOPHEN [Concomitant]
  3. ACETYLSALICYLIC ACID SRT [Concomitant]
  4. CARVEDILOL [Concomitant]
  5. CEFAZOLIN [Concomitant]
  6. CEFEPIME [Concomitant]
  7. CLOPIDOGREL [Concomitant]
  8. DARBOPOETIN ALFA [Concomitant]
  9. DARVOCET [Concomitant]
  10. DIGOXIN [Concomitant]
  11. DIPHENHYDRAMINE [Concomitant]
  12. DOBUTAMINE HCL [Concomitant]
  13. DOPAMINE [Concomitant]
  14. EPINEPHRINE [Concomitant]
  15. FAMOTIDINE [Concomitant]
  16. FENTANYL CITRATE [Concomitant]
  17. FERROUS SULFATE TAB [Concomitant]
  18. FOLIC ACID [Concomitant]
  19. FUROSEMIDE [Concomitant]
  20. HEPARIN [Concomitant]
  21. POTASSIUM CHLORIDE [Concomitant]
  22. LACRI-LUBE [Concomitant]
  23. MAGNESIUM GLUCONATE [Concomitant]
  24. MAGNESIUM SULFATE [Concomitant]
  25. METHYLPREDNISOLONE [Concomitant]
  26. MILRINONE [Concomitant]
  27. MYCOPHENOLATE MOFETIL [Concomitant]
  28. SODIUM NITROPRUSSIDE [Concomitant]
  29. NOREPINEPHRINE [Concomitant]
  30. PANTOPRAZOLE [Concomitant]
  31. PERCOCET [Concomitant]
  32. POLYVINYL ALCOHOL [Concomitant]
  33. PROCHLORPERASZINE [Concomitant]
  34. PROPOFOL [Concomitant]
  35. PROTAMINE SULFATE [Concomitant]
  36. SILVER NITRATE [Concomitant]
  37. TACROLIMUS [Concomitant]
  38. THYMOGLOBULIN [Concomitant]
  39. VASOPRESSIN INJECTION [Concomitant]
  40. WARFARIN SODIUM [Concomitant]
  41. ADENOSINE [Concomitant]
  42. AMIODARONE [Concomitant]

REACTIONS (1)
  - INTERNATIONAL NORMALISED RATIO INCREASED [None]
